FAERS Safety Report 25112432 (Version 4)
Quarter: 2025Q4

REPORT INFORMATION
  Report Type: Spontaneous
  Country: US (occurrence: None)
  Receive Date: 20250324
  Receipt Date: 20251030
  Transmission Date: 20260117
  Serious: No
  Sender: UCB
  Company Number: US-UCBSA-2024014617

PATIENT
  Age: 51 Year

DRUGS (2)
  1. CIMZIA [Suspect]
     Active Substance: CERTOLIZUMAB PEGOL
     Indication: Psoriasis
     Dosage: 400 MILLIGRAM, EV 2 WEEKS(QOW)
  2. BIMZELX [Suspect]
     Active Substance: BIMEKIZUMAB-BKZX
     Indication: Psoriasis
     Dosage: 320 MILLIGRAM, EV 4 WEEKS, FOR 16 WEEKS, THEN 2 SYRINGES EVERY 8 WEEKS THEREAFTER

REACTIONS (1)
  - Psoriasis [Unknown]
